FAERS Safety Report 20776520 (Version 2)
Quarter: 2022Q2

REPORT INFORMATION
  Report Type: Spontaneous
  Country: US (occurrence: US)
  Receive Date: 20220502
  Receipt Date: 20220607
  Transmission Date: 20220720
  Serious: No
  Sender: FDA-Public Use
  Company Number: US-009507513-2204USA009897

PATIENT
  Sex: Female
  Weight: 80.726 kg

DRUGS (7)
  1. KEYTRUDA [Suspect]
     Active Substance: PEMBROLIZUMAB
  2. LENVATINIB MESYLATE [Suspect]
     Active Substance: LENVATINIB MESYLATE
     Indication: Endometrial cancer
     Dosage: 10 MILLIGRAM, QD
     Route: 048
     Dates: start: 20211209
  3. ELIQUIS [Concomitant]
     Active Substance: APIXABAN
  4. HYDROCHLOROTHIAZIDE [Concomitant]
     Active Substance: HYDROCHLOROTHIAZIDE
  5. MONTELUKAST SODIUM [Concomitant]
     Active Substance: MONTELUKAST SODIUM
  6. SYNTHROID [Concomitant]
     Active Substance: LEVOTHYROXINE SODIUM
  7. THYROID, UNSPECIFIED [Concomitant]
     Active Substance: THYROID, UNSPECIFIED

REACTIONS (7)
  - Thyroid disorder [Unknown]
  - Drug hypersensitivity [Unknown]
  - Memory impairment [Unknown]
  - Fatigue [Unknown]
  - Blood glucose increased [Unknown]
  - Constipation [Unknown]
  - Abdominal pain [Unknown]
